FAERS Safety Report 5709231-1 (Version None)
Quarter: 2008Q2

REPORT INFORMATION
  Report Type: 
  Country: None (occurrence: None)
  Receive Date: 20080418
  Receipt Date: 20080410
  Transmission Date: 20081010
  Serious: Yes (Hospitalization, Other)
  Sender: FDA-Public Use
  Company Number: AU-BAYER-200816568GPV

PATIENT
  Age: 51 Year
  Sex: Female

DRUGS (2)
  1. MAGNEVIST [Suspect]
     Indication: NUCLEAR MAGNETIC RESONANCE IMAGING
     Route: 040
     Dates: start: 20080403, end: 20080403
  2. MULTIPLE HEART FAILURE MEDS [Concomitant]
     Indication: CARDIAC FAILURE
     Route: 065

REACTIONS (1)
  - BLINDNESS [None]
